FAERS Safety Report 7382480-5 (Version None)
Quarter: 2011Q1

REPORT INFORMATION
  Report Type: 
  Country: None (occurrence: None)
  Receive Date: 20110329
  Receipt Date: 20110316
  Transmission Date: 20110831
  Serious: Yes (Other)
  Sender: FDA-Public Use
  Company Number: US-BAYER-2011-024169

PATIENT
  Age: 40 Year
  Sex: Male

DRUGS (1)
  1. AVELOX [Suspect]
     Indication: SINUSITIS
     Dosage: UNK
     Route: 048
     Dates: start: 20110201

REACTIONS (4)
  - PARALYSIS [None]
  - MUSCULAR WEAKNESS [None]
  - MYALGIA [None]
  - PERONEAL NERVE PALSY [None]
